FAERS Safety Report 24556532 (Version 5)
Quarter: 2024Q4

REPORT INFORMATION
  Report Type: Spontaneous
  Country: US (occurrence: US)
  Receive Date: 20241028
  Receipt Date: 20241209
  Transmission Date: 20250115
  Serious: No
  Sender: PFIZER
  Company Number: US-PFIZER INC-202400285232

PATIENT
  Age: 10 Year
  Sex: Male

DRUGS (1)
  1. GENOTROPIN [Suspect]
     Active Substance: SOMATROPIN
     Dosage: 1.4 MG, 6 DAYS PER WEEK
     Dates: start: 20241021

REACTIONS (3)
  - Injection site bruising [Unknown]
  - Liquid product physical issue [Unknown]
  - Wrong technique in device usage process [Unknown]
